FAERS Safety Report 11882279 (Version 1)
Quarter: 2015Q4

REPORT INFORMATION
  Report Type: Spontaneous
  Country: US (occurrence: None)
  Receive Date: 20151230
  Receipt Date: 20151230
  Transmission Date: 20160305
  Serious: Yes (Hospitalization)
  Sender: FDA-Public Use
  Company Number: None

PATIENT
  Age: 58 Year
  Sex: Male
  Weight: 68.8 kg

DRUGS (1)
  1. IBUPROFEN. [Suspect]
     Active Substance: IBUPROFEN
     Indication: PAIN
     Route: 048
     Dates: start: 20141203, end: 20151030

REACTIONS (6)
  - Haemoglobin decreased [None]
  - Gastric haemorrhage [None]
  - Duodenal ulcer [None]
  - Gastritis [None]
  - Melaena [None]
  - Haematocrit decreased [None]

NARRATIVE: CASE EVENT DATE: 20151028
